FAERS Safety Report 7491877-4 (Version None)
Quarter: 2011Q2

REPORT INFORMATION
  Report Type: 
  Country: None (occurrence: None)
  Receive Date: 20110519
  Receipt Date: 20110512
  Transmission Date: 20111010
  Serious: Yes (Hospitalization)
  Sender: FDA-Public Use
  Company Number: ES-CEPHALON-2011001699

PATIENT
  Sex: Female
  Weight: 57 kg

DRUGS (11)
  1. BENDAMUSTINE HCL [Suspect]
     Indication: B-CELL LYMPHOMA
     Route: 042
  2. OMEPRAZOLE [Concomitant]
  3. VALTREX [Concomitant]
  4. RITUXIMAB [Suspect]
     Indication: B-CELL LYMPHOMA
     Route: 042
     Dates: start: 20091214, end: 20110315
  5. PANTOPRAZOLE [Concomitant]
  6. ASPIRIN [Concomitant]
  7. LYRICA [Concomitant]
  8. NOCTAMID [Concomitant]
  9. FERROUS SULFATE TAB [Concomitant]
  10. ACYCLOVIR [Concomitant]
  11. ESIDRIX [Concomitant]

REACTIONS (1)
  - VIITH NERVE PARALYSIS [None]
